FAERS Safety Report 10256354 (Version 1)
Quarter: 2014Q2

REPORT INFORMATION
  Report Type: Spontaneous
  Country: DE (occurrence: GB)
  Receive Date: 20140624
  Receipt Date: 20140624
  Transmission Date: 20141212
  Serious: Yes (Hospitalization)
  Sender: FDA-Public Use
  Company Number: GB-FRI-1000068447

PATIENT
  Sex: Male

DRUGS (1)
  1. MEMANTINE [Suspect]
     Indication: DEMENTIA ALZHEIMER^S TYPE
     Dosage: 5 MG
     Route: 048

REACTIONS (4)
  - Investigation [Recovered/Resolved]
  - Abnormal behaviour [Unknown]
  - Drug withdrawal syndrome [Unknown]
  - Off label use [Unknown]
